FAERS Safety Report 8609298-7 (Version None)
Quarter: 2012Q3

REPORT INFORMATION
  Report Type: 
  Country: None (occurrence: None)
  Receive Date: 20120821
  Receipt Date: 20120808
  Transmission Date: 20120928
  Serious: No
  Sender: FDA-Public Use
  Company Number: US-ASTRAZENECA-2012SE56275

PATIENT
  Age: 73 Year
  Sex: Female
  Weight: 106.1 kg

DRUGS (9)
  1. PULMICORT FLEXHALER [Suspect]
     Indication: ASTHMA
     Route: 055
  2. COMBIVENT [Concomitant]
  3. VERAPAMIL [Concomitant]
  4. ASPIRIN [Concomitant]
  5. ACTONEL [Concomitant]
  6. ATACAND [Suspect]
     Indication: BLOOD PRESSURE ABNORMAL
     Route: 048
  7. PULMICORT FLEXHALER [Suspect]
     Route: 055
  8. TRIAMTERENE [Concomitant]
  9. HYDROCODONE BITARTRATE + ACETAMINOPHEN [Concomitant]

REACTIONS (3)
  - WEIGHT DECREASED [None]
  - ARTHRITIS [None]
  - OFF LABEL USE [None]
